FAERS Safety Report 20193951 (Version 2)
Quarter: 2022Q1

REPORT INFORMATION
  Report Type: Spontaneous
  Country: US (occurrence: US)
  Receive Date: 20211216
  Receipt Date: 20220117
  Transmission Date: 20220423
  Serious: Yes (Other)
  Sender: FDA-Public Use
  Company Number: US-SA-SAC20211215000196

PATIENT
  Sex: Male

DRUGS (3)
  1. DUPIXENT [Suspect]
     Active Substance: DUPILUMAB
     Indication: Dermatitis atopic
     Dosage: 300 MG, QOW
     Route: 058
     Dates: start: 20211028
  2. DUPIXENT [Suspect]
     Active Substance: DUPILUMAB
     Indication: Psoriasis
  3. RITUXAN [Concomitant]
     Active Substance: RITUXIMAB
     Dates: start: 20210219

REACTIONS (3)
  - Oropharyngeal cancer recurrent [Not Recovered/Not Resolved]
  - Oral disorder [Unknown]
  - Product use in unapproved indication [Unknown]
